FAERS Safety Report 8141657-1 (Version None)
Quarter: 2012Q1

REPORT INFORMATION
  Report Type: 
  Country: None (occurrence: None)
  Receive Date: 20120216
  Receipt Date: 20120214
  Transmission Date: 20120608
  Serious: Yes (Life-Threatening, Hospitalization, Other)
  Sender: FDA-Public Use
  Company Number: CA-B.I. PHARMACEUTICALS,INC./RIDGEFIELD-2012-CN-00291CN

PATIENT
  Age: 75 Year
  Sex: Male

DRUGS (10)
  1. MULTAQ FILM-COATED TABLETS [Concomitant]
     Route: 065
  2. PRADAXA [Suspect]
     Dosage: 300 MG
     Route: 048
  3. PIOGLITAZONE [Concomitant]
     Route: 065
  4. SYNTHROID [Concomitant]
     Route: 065
  5. ZYLOPRIM [Concomitant]
     Route: 065
  6. BISOPROLOL FUMARATE [Concomitant]
     Route: 065
  7. CRESTOR [Concomitant]
     Route: 065
  8. ASPIRIN [Concomitant]
     Route: 065
  9. DIOVAN [Concomitant]
     Route: 065
  10. LASIX [Concomitant]
     Route: 065

REACTIONS (10)
  - ACTIVATED PARTIAL THROMBOPLASTIN TIME PROLONGED [None]
  - BLOOD PRESSURE DECREASED [None]
  - HAEMATOCRIT DECREASED [None]
  - OVERDOSE [None]
  - HAEMODYNAMIC INSTABILITY [None]
  - INTERNATIONAL NORMALISED RATIO INCREASED [None]
  - PULSE ABNORMAL [None]
  - HAEMOGLOBIN DECREASED [None]
  - DRUG PRESCRIBING ERROR [None]
  - GASTROINTESTINAL HAEMORRHAGE [None]
